FAERS Safety Report 13373057 (Version 1)
Quarter: 2017Q1

REPORT INFORMATION
  Report Type: Spontaneous
  Country: US (occurrence: US)
  Receive Date: 20170326
  Receipt Date: 20170326
  Transmission Date: 20170429
  Serious: Yes (Disabling)
  Sender: FDA-Public Use
  Company Number: None

PATIENT
  Age: 61 Year
  Sex: Female
  Weight: 67.5 kg

DRUGS (13)
  1. KRILL [Concomitant]
  2. ASMANEX [Concomitant]
     Active Substance: MOMETASONE FUROATE
  3. ESOMEPRAZOL [Concomitant]
     Active Substance: ESOMEPRAZOLE
  4. IRON [Concomitant]
     Active Substance: IRON
  5. AUBAGIO [Suspect]
     Active Substance: TERIFLUNOMIDE
     Indication: MULTIPLE SCLEROSIS
     Dosage: ?          QUANTITY:28 TABLET(S);?
     Route: 048
     Dates: start: 20151212, end: 20170325
  6. SPIRIVA [Concomitant]
     Active Substance: TIOTROPIUM BROMIDE MONOHYDRATE
  7. OLOPATADINE [Concomitant]
     Active Substance: OLOPATADINE
  8. MULTI VITAMIN [Concomitant]
     Active Substance: VITAMINS
  9. ROPINROLE HYDROCHLORIDE [Concomitant]
     Active Substance: ROPINIROLE HYDROCHLORIDE
  10. ESTRADIOL. [Concomitant]
     Active Substance: ESTRADIOL
  11. CALCIUM WITH D [Concomitant]
     Active Substance: CALCIUM\VITAMIN D
  12. LISINOPRILE [Concomitant]
  13. ALOE VERA [Concomitant]
     Active Substance: ALOE VERA LEAF

REACTIONS (3)
  - Diarrhoea [None]
  - Diverticulum [None]
  - Intestinal stenosis [None]

NARRATIVE: CASE EVENT DATE: 20170323
